FAERS Safety Report 9640322 (Version 1)
Quarter: 2013Q4

REPORT INFORMATION
  Report Type: Report from Study
  Country: US (occurrence: US)
  Receive Date: 20131023
  Receipt Date: 20131023
  Transmission Date: 20140711
  Serious: Yes (Hospitalization)
  Sender: FDA-Public Use
  Company Number: US-ELI_LILLY_AND_COMPANY-US201310004276

PATIENT
  Age: 76 Year
  Sex: Male
  Weight: 91.17 kg

DRUGS (14)
  1. NECITUMUMAB (11F8) (LY3012211) [Suspect]
     Indication: NEOPLASM MALIGNANT
     Dosage: 800 MG, UNKNOWN
     Route: 042
     Dates: start: 20130918
  2. GEMCITABINE HYDROCHLORIDE [Suspect]
     Indication: NEOPLASM MALIGNANT
     Dosage: 1250 MG/M2, UNKNOWN
     Route: 042
     Dates: start: 20130916
  3. CISPLATIN [Suspect]
     Indication: NEOPLASM MALIGNANT
     Dosage: 75 MG/M2, UNKNOWN
     Route: 042
     Dates: start: 20130916
  4. NIFEDIPINE [Concomitant]
     Indication: HYPERTENSION
     Dosage: UNK
     Dates: start: 20120628
  5. ACETAMINOPHEN [Concomitant]
     Indication: PAIN
     Dosage: UNK
     Dates: start: 20121005
  6. OXYCODONE [Concomitant]
     Indication: PAIN
     Dosage: UNK
     Dates: start: 20130911
  7. ZOLOFT [Concomitant]
     Indication: DEPRESSION
     Dosage: UNK
     Dates: start: 20120606
  8. WARFARIN [Concomitant]
     Indication: DEEP VEIN THROMBOSIS
     Dosage: UNK
     Dates: start: 1992
  9. ALLOPURINOL [Concomitant]
     Indication: GOUT
     Dosage: UNK
     Dates: start: 20120724
  10. PRAVASTATIN [Concomitant]
     Indication: HYPERCHOLESTEROLAEMIA
     Dosage: UNK
     Dates: start: 20110801
  11. DOXYCYCLINE [Concomitant]
     Indication: RASH
     Dosage: UNK
     Dates: start: 20130928
  12. CLINDAMYCIN [Concomitant]
     Indication: RASH
     Dosage: UNK
     Route: 061
     Dates: start: 20130923
  13. ONDANSETRON [Concomitant]
     Indication: PREMEDICATION
     Dosage: UNK
     Dates: start: 20131007, end: 20131007
  14. DEXAMETHASONE [Concomitant]
     Indication: PREMEDICATION
     Dosage: UNK
     Dates: start: 20131007, end: 20131007

REACTIONS (3)
  - Dehydration [Recovering/Resolving]
  - Asthenia [Recovering/Resolving]
  - Hypophagia [Recovering/Resolving]
